FAERS Safety Report 6774327-2 (Version None)
Quarter: 2010Q2

REPORT INFORMATION
  Report Type: 
  Country: None (occurrence: None)
  Receive Date: 20100520
  Receipt Date: 20090911
  Transmission Date: 20101027
  Serious: Yes (Other)
  Sender: FDA-Public Use
  Company Number: 2009245886

PATIENT
  Age: 61 Year
  Sex: Female

DRUGS (9)
  1. PROVERA [Suspect]
     Indication: HORMONE REPLACEMENT THERAPY
     Dosage: 10 MG, ORAL; 2.5 MG ORAL
     Route: 048
     Dates: start: 19920501, end: 19970101
  2. PROVERA [Suspect]
     Indication: HORMONE REPLACEMENT THERAPY
     Dosage: 10 MG, ORAL; 2.5 MG ORAL
     Route: 048
     Dates: start: 19970101, end: 19971001
  3. PREMARIN [Suspect]
     Indication: HORMONE REPLACEMENT THERAPY
     Dosage: 0.625 MG; 1.25 MG
     Dates: start: 19920501, end: 19970301
  4. PREMARIN [Suspect]
     Indication: HORMONE REPLACEMENT THERAPY
     Dosage: 0.625 MG; 1.25 MG
     Dates: start: 19970301, end: 19971001
  5. PREMPRO [Suspect]
     Indication: HORMONE REPLACEMENT THERAPY
     Dosage: 0.625/2.5MG
     Dates: start: 19971001, end: 20050301
  6. NEXIUM [Concomitant]
  7. ASPIRIN [Concomitant]
  8. XANAX [Concomitant]
  9. WELLBUTRIN [Concomitant]

REACTIONS (1)
  - BREAST CANCER FEMALE [None]
